FAERS Safety Report 19758656 (Version 1)
Quarter: 2021Q3

REPORT INFORMATION
  Report Type: Spontaneous
  Country: US (occurrence: US)
  Receive Date: 20210829
  Receipt Date: 20210829
  Transmission Date: 20211014
  Serious: Yes (Other)
  Sender: FDA-Public Use
  Company Number: US-TEVA-2021-US-1945516

PATIENT
  Age: 69 Year
  Sex: Female

DRUGS (2)
  1. AMPHETAMINE W/DEXTROAMPHETAMINE ACTAVIS [Suspect]
     Active Substance: AMPHETAMINE\DEXTROAMPHETAMINE
     Indication: DEPRESSION
     Dosage: 7 CAPSULES OF 15 MG PER DAY
     Route: 065
     Dates: end: 2020
  2. ATIVAN [Concomitant]
     Active Substance: LORAZEPAM
     Indication: PRODUCT USED FOR UNKNOWN INDICATION
     Route: 065

REACTIONS (14)
  - Spinal fracture [Unknown]
  - Hypoaesthesia [Not Recovered/Not Resolved]
  - Peripheral vascular disorder [Not Recovered/Not Resolved]
  - Fatigue [Not Recovered/Not Resolved]
  - Product use in unapproved indication [Unknown]
  - Inflammation [Unknown]
  - Anxiety [Unknown]
  - Paraesthesia [Not Recovered/Not Resolved]
  - Overdose [Unknown]
  - Limb discomfort [Not Recovered/Not Resolved]
  - Withdrawal syndrome [Unknown]
  - Gait disturbance [Not Recovered/Not Resolved]
  - Feeling abnormal [Not Recovered/Not Resolved]
  - Nausea [Not Recovered/Not Resolved]

NARRATIVE: CASE EVENT DATE: 20210819
